FAERS Safety Report 6388688-X (Version None)
Quarter: 2009Q4

REPORT INFORMATION
  Report Type: 
  Country: None (occurrence: None)
  Receive Date: 20091002
  Receipt Date: 20091002
  Transmission Date: 20100525
  Serious: Yes (Hospitalization)
  Sender: FDA-Public Use
  Company Number: None

PATIENT
  Sex: Male
  Weight: 95.2554 kg

DRUGS (1)
  1. AGGRENOX [Suspect]
     Indication: COAGULOPATHY
     Dosage: 1 TIME/DAY
     Dates: start: 20090911, end: 20090930

REACTIONS (3)
  - CARDIOVASCULAR DISORDER [None]
  - MIGRAINE [None]
  - PAIN IN EXTREMITY [None]
